FAERS Safety Report 7866168-X (Version None)
Quarter: 2011Q4

REPORT INFORMATION
  Report Type: 
  Country: None (occurrence: None)
  Receive Date: 20111028
  Receipt Date: 20110504
  Transmission Date: 20120403
  Serious: No
  Sender: FDA-Public Use
  Company Number: US-GLAXOSMITHKLINE-A0925790A

PATIENT
  Age: 69 Year
  Sex: Female

DRUGS (9)
  1. LISINOPRIL [Concomitant]
  2. TRIAMTERENE AND HYDROCHLOROTHIAZIDE [Concomitant]
  3. ADVAIR DISKUS 100/50 [Suspect]
     Indication: CHRONIC OBSTRUCTIVE PULMONARY DISEASE
     Dosage: 1PUFF TWICE PER DAY
     Route: 055
     Dates: start: 20080201
  4. ALPRAZOLAM [Concomitant]
  5. ISOSORBIDE DINITRATE [Concomitant]
  6. GLIMEPIRIDE [Concomitant]
  7. DIASTABOL [Concomitant]
  8. KLOR-CON [Concomitant]
  9. LOVASTATIN [Concomitant]

REACTIONS (1)
  - DYSPHONIA [None]
